FAERS Safety Report 8325143-1 (Version None)
Quarter: 2012Q2

REPORT INFORMATION
  Report Type: 
  Country: None (occurrence: None)
  Receive Date: 20120501
  Receipt Date: 20120421
  Transmission Date: 20120825
  Serious: Yes (Death, Other)
  Sender: FDA-Public Use
  Company Number: PT-GENZYME-THYM-1002663

PATIENT
  Age: 46 Year
  Sex: Female

DRUGS (6)
  1. MYCOPHENOLIC ACID [Concomitant]
     Indication: PRODUCT USED FOR UNKNOWN INDICATION
     Dosage: UNK
     Route: 065
  2. PREDNISONE TAB [Concomitant]
     Indication: IMMUNOSUPPRESSION
     Route: 065
  3. CORTICOSTEROIDS [Concomitant]
     Indication: PRODUCT USED FOR UNKNOWN INDICATION
     Route: 065
  4. THYMOGLOBULIN [Suspect]
     Indication: PROPHYLAXIS AGAINST TRANSPLANT REJECTION
     Route: 042
  5. THYMOGLOBULIN [Suspect]
  6. CYCLOSPORINE [Concomitant]
     Indication: IMMUNOSUPPRESSION
     Route: 065

REACTIONS (4)
  - LIVER TRANSPLANT REJECTION [None]
  - GRAFT LOSS [None]
  - FUNGAL INFECTION [None]
  - SEPTIC SHOCK [None]
